FAERS Safety Report 4724025-1 (Version None)
Quarter: 2005Q3

REPORT INFORMATION
  Report Type: 
  Country: None (occurrence: None)
  Receive Date: 20050722
  Receipt Date: 20050711
  Transmission Date: 20060218
  Serious: Yes (Hospitalization)
  Sender: FDA-Public Use
  Company Number: TCI2005A02907

PATIENT
  Age: 49 Year
  Sex: Male

DRUGS (5)
  1. ACTOS [Suspect]
     Indication: DIABETES MELLITUS
     Dosage: SEE IMAGE
     Route: 048
     Dates: start: 20050225, end: 20050331
  2. ACTOS [Suspect]
     Indication: DIABETES MELLITUS
     Dosage: SEE IMAGE
     Route: 048
     Dates: start: 20050401
  3. ACTOS [Suspect]
     Indication: DIABETES MELLITUS
     Dosage: SEE IMAGE
     Route: 048
     Dates: start: 20050506
  4. PENFILL R (INSULIN HUMAN) [Concomitant]
  5. PENFILL N (INSULIN HUMAN INJECTION, ISOPHANE) [Concomitant]

REACTIONS (7)
  - CARDIAC FAILURE ACUTE [None]
  - CARDIOMEGALY [None]
  - COUGH [None]
  - NASOPHARYNGITIS [None]
  - PALPITATIONS [None]
  - PLEURAL EFFUSION [None]
  - WEIGHT INCREASED [None]
